FAERS Safety Report 6268477-7 (Version None)
Quarter: 2009Q3

REPORT INFORMATION
  Report Type: 
  Country: None (occurrence: None)
  Receive Date: 20090710
  Receipt Date: 20090710
  Transmission Date: 20100115
  Serious: Yes (Other)
  Sender: FDA-Public Use
  Company Number: None

PATIENT
  Age: 53 Year
  Sex: Male
  Weight: 79.3795 kg

DRUGS (2)
  1. PREDNISONE TAB [Suspect]
     Indication: ECZEMA
     Dosage: 1 X 3 TIMES DAY PO
     Route: 048
     Dates: start: 20090521, end: 20090605
  2. PREDNISONE TAB [Suspect]
     Indication: OEDEMA PERIPHERAL
     Dosage: 1 X 3 TIMES DAY PO
     Route: 048
     Dates: start: 20090521, end: 20090605

REACTIONS (2)
  - SKIN EXFOLIATION [None]
  - VISION BLURRED [None]
